FAERS Safety Report 4954631-0 (Version None)
Quarter: 2006Q1

REPORT INFORMATION
  Report Type: 
  Country: None (occurrence: None)
  Receive Date: 20060322
  Receipt Date: 20060313
  Transmission Date: 20060701
  Serious: Yes (Hospitalization)
  Sender: FDA-Public Use
  Company Number: FR200603002771

PATIENT
  Age: 86 Year
  Sex: Female
  Weight: 44 kg

DRUGS (10)
  1. EVISTA [Suspect]
     Indication: OSTEOPOROSIS
     Dosage: 60 MG, DAILY (1/D), ORAL
     Route: 048
     Dates: end: 20051115
  2. PRAVASTATIN [Concomitant]
  3. ZOLOFT [Concomitant]
  4. REMINYL (GALANTAMINE) [Concomitant]
  5. FLECAINIDE ACETATE [Concomitant]
  6. ASPIRIN [Concomitant]
  7. FORLAX (MACROGOL) [Concomitant]
  8. JAMYLENE (DANTRON, DOCUSATE SODIUM) [Concomitant]
  9. OROCAL D(3) /MON/ (CALCIUM CARBONATE, COLECALCIFEROL) [Concomitant]
  10. SEREVENT [Concomitant]

REACTIONS (3)
  - CEREBRAL ATROPHY [None]
  - COMA [None]
  - STATUS EPILEPTICUS [None]
